FAERS Safety Report 21453531 (Version 2)
Quarter: 2022Q4

REPORT INFORMATION
  Report Type: Spontaneous
  Country: FI (occurrence: FI)
  Receive Date: 20221013
  Receipt Date: 20221102
  Transmission Date: 20230113
  Serious: Yes (Life-Threatening, Hospitalization, Other)
  Sender: FDA-Public Use
  Company Number: FI-STADA-259630

PATIENT
  Age: 69 Year
  Sex: Female

DRUGS (3)
  1. RITUXIMAB [Suspect]
     Active Substance: RITUXIMAB
     Indication: Follicular lymphoma
     Dosage: 600 MG (WEEKLY FOR CYCLE 1 AND THEN ON DAY 1 FOR CYCLES 2 TO 5)
     Route: 042
     Dates: start: 20220422
  2. LENALIDOMIDE [Suspect]
     Active Substance: LENALIDOMIDE
     Indication: Follicular lymphoma
     Dosage: 20 MG DAILY (ON DAYS 1 TO 21 FOR CYCLES 1 TO 12)
     Route: 048
     Dates: start: 20220421
  3. TAFASITAMAB [Suspect]
     Active Substance: TAFASITAMAB
     Indication: Follicular lymphoma
     Dosage: UNK
     Dates: start: 20220421

REACTIONS (4)
  - Pseudomonal sepsis [Unknown]
  - Anal ulcer [Recovering/Resolving]
  - Neutropenic infection [Recovering/Resolving]
  - Norovirus infection [Recovering/Resolving]

NARRATIVE: CASE EVENT DATE: 20220901
